FAERS Safety Report 9478136 (Version 3)
Quarter: 2013Q3

REPORT INFORMATION
  Report Type: Spontaneous
  Country: JP (occurrence: JP)
  Receive Date: 20130827
  Receipt Date: 20130911
  Transmission Date: 20140515
  Serious: Yes (Life-Threatening, Hospitalization, Disabling, Other)
  Sender: FDA-Public Use
  Company Number: JP-ASTRAZENECA-2013SE63101

PATIENT
  Age: 28989 Day
  Sex: Male

DRUGS (15)
  1. MEROPEN [Suspect]
     Indication: PNEUMONIA BACTERIAL
     Route: 042
     Dates: start: 20130710, end: 20130712
  2. PIPERACILLIN SODIUM [Suspect]
     Indication: PNEUMONIA BACTERIAL
     Dates: start: 20130713, end: 20130719
  3. DIAMOX [Concomitant]
     Indication: BRAIN NATRIURETIC PEPTIDE INCREASED
     Route: 042
     Dates: start: 20130710, end: 20130723
  4. DIAMOX [Concomitant]
     Indication: CARDIAC FAILURE
     Route: 042
     Dates: start: 20130710, end: 20130723
  5. DOPAMINE HYDROCHLORIDE [Concomitant]
     Indication: SEPTIC SHOCK
     Route: 065
     Dates: start: 20130710, end: 20130712
  6. DOPAMINE HYDROCHLORIDE [Concomitant]
     Indication: SEPTIC SHOCK
     Route: 065
     Dates: start: 20130713, end: 20130808
  7. ELASPOL [Concomitant]
     Indication: ACUTE RESPIRATORY DISTRESS SYNDROME
     Route: 065
     Dates: start: 20130712, end: 20130722
  8. ELNEOPA NO. 1 [Concomitant]
     Indication: NUTRITIONAL SUPPLEMENTATION
     Route: 065
     Dates: start: 20130712, end: 20130719
  9. HUMULIN R [Concomitant]
     Indication: DIABETES MELLITUS
     Route: 065
     Dates: start: 20130712, end: 20130719
  10. FAMOTIDINE [Concomitant]
     Indication: UPPER GASTROINTESTINAL HAEMORRHAGE
     Route: 042
     Dates: start: 20130719
  11. MEYLON [Concomitant]
     Route: 065
     Dates: start: 20130724, end: 20130726
  12. CRAVIT [Concomitant]
     Indication: SEPSIS
     Route: 065
     Dates: start: 20130729, end: 20130729
  13. CRAVIT [Concomitant]
     Indication: SEPSIS
     Route: 065
     Dates: start: 20130730, end: 20130801
  14. MINOCYCLINE HYDROCHLORIDE [Concomitant]
     Indication: SEPSIS
     Route: 065
     Dates: start: 20130802
  15. DIPRIVAN KIT [Concomitant]
     Indication: ANAESTHESIA PROCEDURE
     Dates: end: 20130806

REACTIONS (5)
  - Renal failure acute [Recovered/Resolved]
  - Generalised oedema [Unknown]
  - Melaena [Unknown]
  - Arrhythmia [Unknown]
  - Bradycardia [Unknown]
